FAERS Safety Report 18294088 (Version 1)
Quarter: 2020Q3

REPORT INFORMATION
  Report Type: Spontaneous
  Country: US (occurrence: US)
  Receive Date: 20200922
  Receipt Date: 20200922
  Transmission Date: 20201103
  Serious: Yes (Hospitalization)
  Sender: FDA-Public Use
  Company Number: None

PATIENT
  Sex: Female

DRUGS (1)
  1. CAPECITABINE. [Suspect]
     Active Substance: CAPECITABINE
     Indication: PANCREATIC CARCINOMA
     Route: 048
     Dates: start: 20200818

REACTIONS (5)
  - Hypoaesthesia [None]
  - Haematochezia [None]
  - Diarrhoea [None]
  - Pharyngeal hypoaesthesia [None]
  - Increased tendency to bruise [None]
